FAERS Safety Report 6523964-9 (Version None)
Quarter: 2009Q4

REPORT INFORMATION
  Report Type: 
  Country: None (occurrence: None)
  Receive Date: 20091230
  Receipt Date: 20091230
  Transmission Date: 20100525
  Serious: Yes (Life-Threatening, Hospitalization)
  Sender: FDA-Public Use
  Company Number: None

PATIENT
  Age: 44 Year
  Sex: Female
  Weight: 60.782 kg

DRUGS (4)
  1. NEURONTIN [Suspect]
     Indication: FIBROMYALGIA
     Dosage: 600 MG 3X DAY
     Dates: start: 20091117
  2. NEURONTIN [Suspect]
     Indication: PAIN
     Dosage: 600 MG 3X DAY
     Dates: start: 20091117
  3. NEURONTIN [Suspect]
     Indication: FIBROMYALGIA
     Dosage: 600 MG 3X DAY
     Dates: start: 20091127
  4. NEURONTIN [Suspect]
     Indication: PAIN
     Dosage: 600 MG 3X DAY
     Dates: start: 20091127

REACTIONS (5)
  - DEPRESSION [None]
  - FATIGUE [None]
  - FEELING ABNORMAL [None]
  - SKIN LACERATION [None]
  - SUICIDE ATTEMPT [None]
